FAERS Safety Report 7984907-4 (Version None)
Quarter: 2011Q4

REPORT INFORMATION
  Report Type: 
  Country: None (occurrence: None)
  Receive Date: 20111216
  Receipt Date: 20111006
  Transmission Date: 20120403
  Serious: No
  Sender: FDA-Public Use
  Company Number: US-ALLERGAN-1113263US

PATIENT
  Sex: Female

DRUGS (2)
  1. METHOTREXATE [Concomitant]
     Indication: ARTHRITIS
     Dosage: UNK
  2. LATISSE [Suspect]
     Indication: GROWTH OF EYELASHES
     Dosage: 1 GTT, QHS
     Route: 061
     Dates: start: 20110930, end: 20111001

REACTIONS (5)
  - DRY EYE [None]
  - VISION BLURRED [None]
  - FOREIGN BODY SENSATION IN EYES [None]
  - EYELID OEDEMA [None]
  - EYE PAIN [None]
